FAERS Safety Report 4322921-0 (Version None)
Quarter: 2004Q1

REPORT INFORMATION
  Report Type: 
  Country: None (occurrence: None)
  Receive Date: 20040322
  Receipt Date: 20031222
  Transmission Date: 20041129
  Serious: Yes (Other)
  Sender: FDA-Public Use
  Company Number: 2003111985

PATIENT
  Sex: Male

DRUGS (1)
  1. VFEND [Suspect]
     Indication: FUSARIUM INFECTION
     Dates: start: 20030101

REACTIONS (2)
  - FUSARIUM INFECTION [None]
  - HERPES SIMPLEX [None]
